FAERS Safety Report 17696595 (Version 2)
Quarter: 2022Q2

REPORT INFORMATION
  Report Type: Spontaneous
  Country: US (occurrence: US)
  Receive Date: 20200423
  Receipt Date: 20220616
  Transmission Date: 20220721
  Serious: No
  Sender: FDA-Public Use
  Company Number: US-PURDUE-USA-2019-0148808

PATIENT
  Sex: Female

DRUGS (3)
  1. OXYCODONE HYDROCHLORIDE [Suspect]
     Active Substance: OXYCODONE HYDROCHLORIDE
     Indication: Pain
     Dosage: 2X30 MG, BID
     Route: 048
     Dates: start: 2007, end: 2018
  2. OXYCODONE HYDROCHLORIDE [Suspect]
     Active Substance: OXYCODONE HYDROCHLORIDE
     Dosage: 180 MG, DAILY
     Route: 048
     Dates: start: 2014, end: 2019
  3. METHADONE                          /00068902/ [Concomitant]
     Indication: Pain
     Dosage: 60 MG, DAILY
     Route: 048
     Dates: start: 2014, end: 2019

REACTIONS (2)
  - Drug dose titration not performed [Unknown]
  - Drug tolerance [Not Recovered/Not Resolved]

NARRATIVE: CASE EVENT DATE: 20190101
